FAERS Safety Report 7716880-8 (Version None)
Quarter: 2011Q3

REPORT INFORMATION
  Report Type: 
  Country: None (occurrence: None)
  Receive Date: 20110829
  Receipt Date: 20110820
  Transmission Date: 20111222
  Serious: Yes (Other)
  Sender: FDA-Public Use
  Company Number: BR-BAYER-2011-075647

PATIENT
  Age: 83 Year
  Sex: Male
  Weight: 80 kg

DRUGS (3)
  1. AVELOX [Suspect]
     Indication: PNEUMONIA
     Dosage: 400 MG, QD
     Route: 048
     Dates: start: 20110816
  2. ACYCLOVIR [Concomitant]
     Indication: HERPES ZOSTER
     Dosage: 200 MG, QD
     Route: 048
     Dates: start: 20110817
  3. CITALOPRAM [Concomitant]
     Indication: FEELING OF RELAXATION
     Dosage: 20 MG, QD
     Route: 048

REACTIONS (3)
  - MEMORY IMPAIRMENT [None]
  - HERPES ZOSTER [None]
  - CONFUSIONAL STATE [None]
